FAERS Safety Report 4836461-3 (Version None)
Quarter: 2005Q4

REPORT INFORMATION
  Report Type: 
  Country: None (occurrence: None)
  Receive Date: 20051123
  Receipt Date: 20051110
  Transmission Date: 20060501
  Serious: Yes (Other)
  Sender: FDA-Public Use
  Company Number: PHFR2005GB03718

PATIENT
  Sex: Male

DRUGS (2)
  1. TEGRETOL [Suspect]
     Indication: EPILEPSY
     Dosage: 200 MG, BID
     Route: 048
  2. ACETAMINOPHEN [Concomitant]

REACTIONS (2)
  - BLOOD SODIUM INCREASED [None]
  - DYSPHAGIA [None]
